FAERS Safety Report 12967181 (Version 1)
Quarter: 2016Q4

REPORT INFORMATION
  Report Type: Report from Study
  Country: ES (occurrence: ES)
  Receive Date: 20161123
  Receipt Date: 20161123
  Transmission Date: 20170207
  Serious: Yes (Hospitalization)
  Sender: FDA-Public Use
  Company Number: ES-ROCHE-1857831

PATIENT
  Sex: Female

DRUGS (1)
  1. RITUXIMAB [Suspect]
     Active Substance: RITUXIMAB
     Indication: RHEUMATOID ARTHRITIS
     Dosage: CONCENTRADO PARA SOLUCION PARA PERFUSION, 2 VIALES DE
     Route: 042
     Dates: start: 20150703

REACTIONS (1)
  - Rectal neoplasm [Recovering/Resolving]

NARRATIVE: CASE EVENT DATE: 20150801
